FAERS Safety Report 7773648-4 (Version None)
Quarter: 2011Q3

REPORT INFORMATION
  Report Type: 
  Country: None (occurrence: None)
  Receive Date: 20110923
  Receipt Date: 20110916
  Transmission Date: 20111222
  Serious: Yes (Hospitalization)
  Sender: FDA-Public Use
  Company Number: US-BIOGENIDEC-2011BI033073

PATIENT
  Age: 69 Year
  Sex: Male

DRUGS (2)
  1. TYSABRI [Suspect]
     Indication: CROHN'S DISEASE
     Route: 042
     Dates: start: 20110617
  2. TYSABRI [Suspect]
     Route: 042
     Dates: start: 20090429, end: 20110209

REACTIONS (1)
  - PNEUMONIA [None]
